FAERS Safety Report 8789149 (Version 1)
Quarter: 2012Q4

REPORT INFORMATION
  Report Type: Spontaneous
  Country: US (occurrence: None)
  Receive Date: 20120907
  Receipt Date: 20120907
  Transmission Date: 20130627
  Serious: Yes (Hospitalization)
  Sender: FDA-Public Use
  Company Number: None

PATIENT
  Age: 73 Year
  Sex: Male
  Weight: 66.3 kg

DRUGS (3)
  1. AMOXICILLIN [Suspect]
     Indication: TOOTH DECAY
     Dates: start: 20120611, end: 20120620
  2. AMOXICILLIN [Suspect]
     Indication: PERIODONTAL DISEASE
     Dates: start: 20120611, end: 20120620
  3. CLINDAMYCIN [Suspect]
     Dates: start: 20120203, end: 20120212

REACTIONS (3)
  - Clostridium difficile colitis [None]
  - Dehydration [None]
  - Electrolyte imbalance [None]
